FAERS Safety Report 24353119 (Version 1)
Quarter: 2024Q3

REPORT INFORMATION
  Report Type: Spontaneous
  Country: US (occurrence: US)
  Receive Date: 20240923
  Receipt Date: 20240923
  Transmission Date: 20241017
  Serious: Yes (Life-Threatening, Hospitalization, Other)
  Sender: PFIZER
  Company Number: US-PFIZER INC-202400260301

PATIENT
  Age: 80 Year
  Sex: Male

DRUGS (1)
  1. TUKYSA [Suspect]
     Active Substance: TUCATINIB
     Dosage: 150 MG 2 BY MOUTH EVERY MORNING AND 1 BY MOUTH EVERY EVENING
     Route: 048
     Dates: end: 20240212

REACTIONS (2)
  - Malaise [Unknown]
  - Renal impairment [Unknown]
